FAERS Safety Report 6132603-0 (Version None)
Quarter: 2009Q1

REPORT INFORMATION
  Report Type: 
  Country: None (occurrence: None)
  Receive Date: 20090324
  Receipt Date: 20090313
  Transmission Date: 20090719
  Serious: Yes (Death, Hospitalization, Other)
  Sender: FDA-Public Use
  Company Number: VISP-NO-0811S--0548

PATIENT
  Age: 73 Year
  Sex: Male

DRUGS (1)
  1. VISIPAQUE [Suspect]
     Indication: DRUG USE FOR UNKNOWN INDICATION
     Dosage: 140 ML, SINGLE DOSE, I.V.
     Route: 042
     Dates: start: 20081008, end: 20081008

REACTIONS (38)
  - ACUTE RESPIRATORY DISTRESS SYNDROME [None]
  - ANAEMIA [None]
  - ANAPHYLACTIC SHOCK [None]
  - ATRIAL FIBRILLATION [None]
  - BLOOD CULTURE POSITIVE [None]
  - CARDIAC FAILURE CONGESTIVE [None]
  - CONTINUOUS HAEMODIAFILTRATION [None]
  - CONTRAST MEDIA ALLERGY [None]
  - DEHYDRATION [None]
  - FIBRIN D DIMER INCREASED [None]
  - GASTROINTESTINAL NECROSIS [None]
  - HYPERTENSION [None]
  - HYPOCOAGULABLE STATE [None]
  - HYPOTENSION [None]
  - ILEUS [None]
  - KLEBSIELLA INFECTION [None]
  - KLEBSIELLA SEPSIS [None]
  - LARGE INTESTINE PERFORATION [None]
  - MULTI-ORGAN FAILURE [None]
  - NERVOUS SYSTEM DISORDER [None]
  - PANCREATIC FISTULA [None]
  - PANCREATITIS ACUTE [None]
  - PANCREATITIS HAEMORRHAGIC [None]
  - PANCREATITIS NECROTISING [None]
  - PERITONEAL HAEMORRHAGE [None]
  - PERITONITIS [None]
  - PLATELET COUNT DECREASED [None]
  - PLEURAL EFFUSION [None]
  - PULMONARY OEDEMA [None]
  - RENAL FAILURE ACUTE [None]
  - RESPIRATORY FAILURE [None]
  - SEPTIC SHOCK [None]
  - SOPOR [None]
  - SPLEEN DISORDER [None]
  - SUPERINFECTION [None]
  - THROMBOCYTOPENIA [None]
  - TROPONIN INCREASED [None]
  - VASOCONSTRICTION [None]
